FAERS Safety Report 10648530 (Version 1)
Quarter: 2014Q4

REPORT INFORMATION
  Report Type: Spontaneous
  Country: US (occurrence: None)
  Receive Date: 20141210
  Receipt Date: 20141210
  Transmission Date: 20150529
  Serious: Yes (Other)
  Sender: FDA-Public Use
  Company Number: 2014MB000008

PATIENT
  Age: 39 Year
  Sex: Male

DRUGS (1)
  1. MITOSOL [Suspect]
     Active Substance: ISOPROPYL ALCOHOL\MITOMYCIN
     Indication: CONJUNCTIVAL PRIMARY ACQUIRED MELANOSIS

REACTIONS (15)
  - Ulcer [None]
  - Necrotising scleritis [None]
  - Intraocular pressure increased [None]
  - Pseudomonas test positive [None]
  - Scleritis [None]
  - Scleral thinning [None]
  - Diplopia [None]
  - Astigmatism [None]
  - Scleral disorder [None]
  - Corneal deposits [None]
  - Visual acuity reduced [None]
  - Conjunctival disorder [None]
  - Staphyloma [None]
  - Iridocyclitis [None]
  - Bacterial infection [None]
